FAERS Safety Report 21372420 (Version 1)
Quarter: 2022Q3

REPORT INFORMATION
  Report Type: Spontaneous
  Country: ZA (occurrence: ZA)
  Receive Date: 20220924
  Receipt Date: 20220924
  Transmission Date: 20221027
  Serious: No
  Sender: FDA-Public Use
  Company Number: ZA-LUPIN PHARMACEUTICALS INC.-2022-11224

PATIENT
  Age: 82 Year
  Sex: Female

DRUGS (7)
  1. AMLODIPINE BESYLATE [Suspect]
     Active Substance: AMLODIPINE BESYLATE
     Indication: Hypertension
     Dosage: 10 MG
     Route: 048
  2. INDAPAMIDE [Suspect]
     Active Substance: INDAPAMIDE
     Indication: Hypertension
     Dosage: 1.5 MG
     Route: 048
  3. BISOPROLOL FUMARATE [Suspect]
     Active Substance: BISOPROLOL FUMARATE
     Indication: Hypertension
     Dosage: 5 MG
     Route: 048
  4. CELEBREX [Suspect]
     Active Substance: CELECOXIB
     Indication: Inflammation
     Dosage: 200 MG
     Route: 048
  5. CELEBREX [Suspect]
     Active Substance: CELECOXIB
     Indication: Pain
  6. ECOTRIN [Suspect]
     Active Substance: ASPIRIN
     Indication: Anticoagulant therapy
     Dosage: 81 MG
     Route: 048
  7. OXAZEPAM [Suspect]
     Active Substance: OXAZEPAM
     Indication: Stress
     Dosage: 10 MG
     Route: 048

REACTIONS (1)
  - Eye disorder [Unknown]
